FAERS Safety Report 20315210 (Version 1)
Quarter: 2022Q1

REPORT INFORMATION
  Report Type: Spontaneous
  Country: US (occurrence: None)
  Receive Date: 20220107
  Receipt Date: 20220107
  Transmission Date: 20220423
  Serious: Yes (Other)
  Sender: FDA-Public Use
  Company Number: None

PATIENT
  Age: 46 Year
  Sex: Female
  Weight: 63 kg

DRUGS (4)
  1. BRIMONIDINE [Suspect]
     Active Substance: BRIMONIDINE TARTRATE
     Indication: Glaucoma
     Dosage: FREQUENCY : 3 TIMES A DAY;?
     Route: 047
  2. VYZULTA [Concomitant]
     Active Substance: LATANOPROSTENE BUNOD
  3. OXERVATE [Concomitant]
     Active Substance: CENEGERMIN-BKBJ
  4. TIMOPTIC [Concomitant]
     Active Substance: TIMOLOL MALEATE

REACTIONS (3)
  - Hypersensitivity [None]
  - Ocular hyperaemia [None]
  - Eye inflammation [None]

NARRATIVE: CASE EVENT DATE: 20210429
